FAERS Safety Report 12331954 (Version 1)
Quarter: 2016Q2

REPORT INFORMATION
  Report Type: Spontaneous
  Country: US (occurrence: US)
  Receive Date: 20160504
  Receipt Date: 20160504
  Transmission Date: 20160815
  Serious: No
  Sender: FDA-Public Use
  Company Number: US-PFIZER INC-2016204050

PATIENT
  Age: 58 Year
  Sex: Female
  Weight: 50.35 kg

DRUGS (2)
  1. PREMARIN [Suspect]
     Active Substance: ESTROGENS, CONJUGATED
     Indication: MENOPAUSAL SYMPTOMS
     Dosage: 1.25 MG, DAILY
     Route: 048
     Dates: start: 1980
  2. PREMARIN [Suspect]
     Active Substance: ESTROGENS, CONJUGATED
     Indication: MENOPAUSAL SYMPTOMS
     Dosage: UNK
     Dates: start: 1990

REACTIONS (11)
  - Blood testosterone decreased [Unknown]
  - Malaise [Unknown]
  - Hypovitaminosis [Unknown]
  - Nausea [Unknown]
  - Emotional disorder [Unknown]
  - Haemoglobin decreased [Unknown]
  - Hormone level abnormal [Unknown]
  - Weight decreased [Unknown]
  - Headache [Unknown]
  - Dizziness [Unknown]
  - Feeling abnormal [Unknown]
